FAERS Safety Report 4493386-3 (Version None)
Quarter: 2004Q4

REPORT INFORMATION
  Report Type: 
  Country: None (occurrence: None)
  Receive Date: 20041102
  Receipt Date: 20041025
  Transmission Date: 20050328
  Serious: Yes (Hospitalization)
  Sender: FDA-Public Use
  Company Number: 20042048

PATIENT
  Sex: Male

DRUGS (1)
  1. LIORESAL [Suspect]
     Indication: MUSCLE SPASTICITY
     Dosage: DAILY, INTRATHECAL
     Route: 037

REACTIONS (7)
  - CLONUS [None]
  - CONVULSION [None]
  - HYPERHIDROSIS [None]
  - INTESTINAL OBSTRUCTION [None]
  - MEDICATION ERROR [None]
  - MUSCLE SPASMS [None]
  - PYREXIA [None]
